FAERS Safety Report 19975635 (Version 2)
Quarter: 2021Q4

REPORT INFORMATION
  Report Type: Spontaneous
  Country: US (occurrence: US)
  Receive Date: 20211021
  Receipt Date: 20211029
  Transmission Date: 20220304
  Serious: Yes (Other)
  Sender: FDA-Public Use
  Company Number: US-ELI_LILLY_AND_COMPANY-US202110004782

PATIENT
  Sex: Female

DRUGS (1)
  1. GLUCAGON [Suspect]
     Active Substance: GLUCAGON
     Indication: Shock hypoglycaemic
     Dosage: UNK UNK, UNKNOWN
     Route: 065

REACTIONS (2)
  - Shock hypoglycaemic [Recovered/Resolved]
  - Drug ineffective [Unknown]
